FAERS Safety Report 15385629 (Version 1)
Quarter: 2018Q3

REPORT INFORMATION
  Report Type: Spontaneous
  Country: US (occurrence: US)
  Receive Date: 20180914
  Receipt Date: 20180914
  Transmission Date: 20181010
  Serious: Yes (Other)
  Sender: FDA-Public Use
  Company Number: US-TEVA-2018-US-934780

PATIENT
  Age: 29 Year
  Sex: Male

DRUGS (2)
  1. PROPOFOL. [Suspect]
     Active Substance: PROPOFOL
     Indication: SEDATION
     Dosage: ESTIMATED TOTAL EXPOSURE TO PROPOFOL INFUSION WAS 100 HOURS EQUALS TO AN AVERAGE PROPOFOL DOSE OF...
     Route: 065
  2. FENTANYL. [Concomitant]
     Active Substance: FENTANYL
     Indication: SEDATION
     Dosage: INFUSION
     Route: 065

REACTIONS (5)
  - Rhabdomyolysis [Recovered/Resolved]
  - Renal failure [Not Recovered/Not Resolved]
  - Liver injury [Unknown]
  - Propofol infusion syndrome [Recovered/Resolved]
  - Metabolic function test abnormal [Unknown]
